FAERS Safety Report 6526620-6 (Version None)
Quarter: 2010Q1

REPORT INFORMATION
  Report Type: 
  Country: None (occurrence: None)
  Receive Date: 20100105
  Receipt Date: 20091228
  Transmission Date: 20100710
  Serious: Yes (Other)
  Sender: FDA-Public Use
  Company Number: GB-ROCHE-676781

PATIENT
  Age: 56 Year
  Sex: Male

DRUGS (1)
  1. CAPECITABINE [Suspect]
     Route: 065

REACTIONS (2)
  - DIABETES MELLITUS [None]
  - HYPERTRIGLYCERIDAEMIA [None]
